FAERS Safety Report 10996442 (Version 2)
Quarter: 2015Q2

REPORT INFORMATION
  Report Type: Spontaneous
  Country: DE (occurrence: DE)
  Receive Date: 20150408
  Receipt Date: 20150526
  Transmission Date: 20150821
  Serious: Yes (Hospitalization)
  Sender: FDA-Public Use
  Company Number: DE-ROCHE-1561054

PATIENT
  Sex: Male

DRUGS (3)
  1. RANIBIZUMAB [Suspect]
     Active Substance: RANIBIZUMAB
     Indication: DIABETIC RETINAL OEDEMA
     Route: 050
     Dates: start: 20150118, end: 20150118
  2. FALITHROM [Interacting]
     Active Substance: PHENPROCOUMON
     Indication: CARDIOVASCULAR DISORDER
     Route: 050
     Dates: start: 2013
  3. FALITHROM [Interacting]
     Active Substance: PHENPROCOUMON
     Indication: PULMONARY EMBOLISM

REACTIONS (8)
  - Optic atrophy [Not Recovered/Not Resolved]
  - Glaucoma [Not Recovered/Not Resolved]
  - Cataract [Recovered/Resolved]
  - Vitreous haemorrhage [Not Recovered/Not Resolved]
  - Corneal bleeding [Not Recovered/Not Resolved]
  - Hyphaema [Not Recovered/Not Resolved]
  - Eye haemorrhage [Not Recovered/Not Resolved]
  - Drug interaction [Unknown]
